FAERS Safety Report 23207285 (Version 1)
Quarter: 2023Q4

REPORT INFORMATION
  Report Type: Report from Study
  Country: JP (occurrence: JP)
  Receive Date: 20231120
  Receipt Date: 20231120
  Transmission Date: 20240109
  Serious: Yes (Hospitalization)
  Sender: FDA-Public Use
  Company Number: JP-WW-2022-11533-3-LUN

PATIENT
  Age: 66 Year
  Sex: Female
  Weight: 56 kg

DRUGS (16)
  1. LUNESTA [Suspect]
     Active Substance: ESZOPICLONE
     Route: 048
  2. LENVIMA [Suspect]
     Active Substance: LENVATINIB
     Indication: Endometrial cancer recurrent
     Route: 048
     Dates: start: 20221011, end: 20221014
  3. LENVIMA [Suspect]
     Active Substance: LENVATINIB
     Indication: Endometrial cancer recurrent
     Route: 048
     Dates: start: 20221015, end: 20221031
  4. LENVIMA [Suspect]
     Active Substance: LENVATINIB
     Indication: Endometrial cancer recurrent
     Route: 048
     Dates: start: 20221111, end: 20221124
  5. KEYTRUDA [Suspect]
     Active Substance: PEMBROLIZUMAB
     Indication: Endometrial cancer recurrent
     Dosage: 200 MG PER 3 WEEKS
     Route: 041
     Dates: start: 20221011
  6. KEYTRUDA [Suspect]
     Active Substance: PEMBROLIZUMAB
     Indication: Endometrial cancer recurrent
     Dosage: 200 MG PER 3 WEEKS
     Route: 041
     Dates: start: 20221109
  7. KEYTRUDA [Suspect]
     Active Substance: PEMBROLIZUMAB
     Indication: Endometrial cancer recurrent
     Dosage: 400 MG PER 6 WEEKS
     Route: 041
     Dates: start: 20221227
  8. KEYTRUDA [Suspect]
     Active Substance: PEMBROLIZUMAB
     Indication: Endometrial cancer recurrent
     Dosage: 400 MG PER 6 WEEKS
     Route: 041
     Dates: start: 20230207
  9. PACLITAXEL [Suspect]
     Active Substance: PACLITAXEL
     Indication: Endometrial cancer recurrent
     Dosage: DOSE UNKNOWN
     Route: 065
     Dates: start: 20210609, end: 20211005
  10. ZOLPIDEM TARTRATE [Suspect]
     Active Substance: ZOLPIDEM TARTRATE
     Route: 048
  11. DAYVIGO [Concomitant]
     Active Substance: LEMBOREXANT
     Indication: Delirium
     Route: 048
     Dates: start: 20221128
  12. MIROGABALIN BESYLATE [Concomitant]
     Active Substance: MIROGABALIN BESYLATE
     Indication: Neuralgia
     Route: 048
     Dates: start: 20221012
  13. LOXOPROFEN [Concomitant]
     Active Substance: LOXOPROFEN
     Indication: Neuralgia
     Route: 048
     Dates: start: 20221012
  14. Rinderon [Concomitant]
     Indication: Palmar-plantar erythrodysaesthesia syndrome
     Route: 061
     Dates: start: 20221013
  15. ROZEREM [Concomitant]
     Active Substance: RAMELTEON
     Indication: Delirium
     Route: 048
     Dates: start: 20221128
  16. Other Agents for Epidermis [Concomitant]
     Indication: Palmar-plantar erythrodysaesthesia syndrome
     Route: 065
     Dates: start: 20221013

REACTIONS (9)
  - Palmar-plantar erythrodysaesthesia syndrome [Recovering/Resolving]
  - Platelet count decreased [Recovering/Resolving]
  - Proteinuria [Recovering/Resolving]
  - Renal disorder [Recovering/Resolving]
  - Hypothyroidism [Recovering/Resolving]
  - Delirium [Recovering/Resolving]
  - Neuralgia [Recovering/Resolving]
  - Malaise [Unknown]
  - Hypophagia [Unknown]

NARRATIVE: CASE EVENT DATE: 20221012
